FAERS Safety Report 6886895-0 (Version None)
Quarter: 2010Q3

REPORT INFORMATION
  Report Type: 
  Country: None (occurrence: None)
  Receive Date: 20100730
  Receipt Date: 20100721
  Transmission Date: 20110219
  Serious: Yes (Life-Threatening, Hospitalization, Other)
  Sender: FDA-Public Use
  Company Number: FR-JNJFOC-20100707326

PATIENT
  Age: 38 Year
  Sex: Female

DRUGS (4)
  1. REOPRO [Suspect]
     Indication: CORONARY ARTERY THROMBOSIS
     Dosage: UNSPECIFIED INFUSION
     Route: 042
  2. REOPRO [Suspect]
     Route: 042
  3. CLOPIDOGREL [Suspect]
     Indication: CORONARY ARTERY THROMBOSIS
  4. CARDEGIC [Concomitant]
     Indication: CORONARY ARTERY THROMBOSIS

REACTIONS (2)
  - DRUG EXPOSURE DURING PREGNANCY [None]
  - MYOCARDIAL INFARCTION [None]
